FAERS Safety Report 7725519-7 (Version None)
Quarter: 2011Q3

REPORT INFORMATION
  Report Type: 
  Country: None (occurrence: None)
  Receive Date: 20110902
  Receipt Date: 20110627
  Transmission Date: 20111222
  Serious: Yes (Other)
  Sender: FDA-Public Use
  Company Number: US-BRISTOL-MYERS SQUIBB COMPANY-15731425

PATIENT
  Age: 65 Year
  Sex: Male
  Weight: 109 kg

DRUGS (4)
  1. KOMBIGLYZE XR [Suspect]
     Dates: end: 20110501
  2. LISINOPRIL [Suspect]
  3. ATENOLOL [Suspect]
  4. FELODIPINE [Suspect]

REACTIONS (2)
  - FACE OEDEMA [None]
  - URTICARIA [None]
